FAERS Safety Report 14011209 (Version 1)
Quarter: 2017Q3

REPORT INFORMATION
  Report Type: Spontaneous
  Country: GB (occurrence: GB)
  Receive Date: 20170926
  Receipt Date: 20170926
  Transmission Date: 20171128
  Serious: Yes (Congenital Anomaly, Other)
  Sender: FDA-Public Use
  Company Number: GB-AUROBINDO-AUR-APL-2017-40631

PATIENT

DRUGS (1)
  1. VENLAFAXINE [Suspect]
     Active Substance: VENLAFAXINE HYDROCHLORIDE
     Indication: DEPRESSION
     Dosage: 37.5 MG, UNK
     Route: 064
     Dates: start: 2015

REACTIONS (1)
  - Congenital cystic lung [Not Recovered/Not Resolved]
